FAERS Safety Report 4848741-6 (Version None)
Quarter: 2005Q4

REPORT INFORMATION
  Report Type: 
  Country: None (occurrence: None)
  Receive Date: 20051206
  Receipt Date: 20051123
  Transmission Date: 20060501
  Serious: Yes (Other)
  Sender: FDA-Public Use
  Company Number: 2005161930

PATIENT
  Age: 10 Year
  Sex: Male

DRUGS (1)
  1. GENOTROPIN [Suspect]
     Indication: BODY HEIGHT BELOW NORMAL
     Dosage: 2.1 I.U. (2.1 I.U., DAILY), SUBCUTANEOUS
     Route: 058
     Dates: start: 20041201

REACTIONS (2)
  - EPIPHYSIOLYSIS [None]
  - OSTEONECROSIS [None]
